FAERS Safety Report 4266811-0 (Version None)
Quarter: 2004Q1

REPORT INFORMATION
  Report Type: 
  Country: None (occurrence: None)
  Receive Date: 20040108
  Receipt Date: 20030114
  Transmission Date: 20041129
  Serious: Yes (Hospitalization, Other)
  Sender: FDA-Public Use
  Company Number: US-GLAXOSMITHKLINE-A0392387A

PATIENT
  Age: 46 Year
  Sex: Male
  Weight: 120.9 kg

DRUGS (12)
  1. EPIVIR-HBV [Suspect]
     Indication: HEPATITIS B
     Dosage: 100MG PER DAY
     Route: 048
     Dates: start: 20021122
  2. PROGRAF [Concomitant]
     Indication: HEART TRANSPLANT
     Dosage: 6MG TWICE PER DAY
     Route: 048
  3. CELLCEPT [Concomitant]
     Dosage: 1250MG TWICE PER DAY
     Route: 048
  4. PREDNISONE [Concomitant]
     Dosage: 2.5MG TWICE PER DAY
     Route: 048
  5. VITAMIN D [Concomitant]
     Route: 048
  6. ACYCLOVIR [Concomitant]
     Dosage: 200MG THREE TIMES PER DAY
     Route: 048
  7. NYSTATIN SWALLOW + SWISH [Concomitant]
     Route: 048
  8. SEPTRA DS [Concomitant]
     Route: 048
  9. K-DUR 10 [Concomitant]
     Route: 048
  10. VASOTEC [Concomitant]
     Dosage: 5MG TWICE PER DAY
     Route: 048
  11. LASIX [Concomitant]
     Route: 048
  12. CALCIUM [Concomitant]
     Route: 048

REACTIONS (2)
  - BLOOD GLUCOSE INCREASED [None]
  - HYPERGLYCAEMIA [None]
